FAERS Safety Report 5067536-4 (Version None)
Quarter: 2006Q3

REPORT INFORMATION
  Report Type: 
  Country: None (occurrence: None)
  Receive Date: 20060731
  Receipt Date: 20060710
  Transmission Date: 20061208
  Serious: Yes (Other)
  Sender: FDA-Public Use
  Company Number: US200602001039

PATIENT
  Age: 51 Year
  Sex: Female

DRUGS (10)
  1. STRATTERA [Suspect]
     Indication: MEMORY IMPAIRMENT
     Dosage: 60 MG, DAILY (1/D); 25 MG, DAILY (1/D);  60 MG
     Dates: start: 20050801
  2. STRATTERA [Suspect]
     Indication: MEMORY IMPAIRMENT
     Dosage: 60 MG, DAILY (1/D); 25 MG, DAILY (1/D);  60 MG
     Dates: start: 20051001
  3. STRATTERA [Suspect]
     Indication: MEMORY IMPAIRMENT
     Dosage: 60 MG, DAILY (1/D); 25 MG, DAILY (1/D);  60 MG
     Dates: start: 20060101
  4. STRATTERA [Suspect]
     Indication: MEMORY IMPAIRMENT
     Dosage: 60 MG, DAILY (1/D); 25 MG, DAILY (1/D);  60 MG
     Dates: start: 20060401
  5. FLUOXETINE [Concomitant]
  6. LITHIUM (LITHIUM) [Concomitant]
  7. VALIUM [Concomitant]
  8. ZYRTEK (CETIRIZINE HYDROCHLORIDE) [Concomitant]
  9. SINGULAIR [Concomitant]
  10. FLONASE [Concomitant]

REACTIONS (8)
  - CHEST PAIN [None]
  - DIZZINESS [None]
  - DRUG DOSE OMISSION [None]
  - FEELING HOT [None]
  - HEADACHE [None]
  - MYOCARDIAL INFARCTION [None]
  - PARAESTHESIA [None]
  - TREATMENT NONCOMPLIANCE [None]
